FAERS Safety Report 5142248-7 (Version None)
Quarter: 2006Q4

REPORT INFORMATION
  Report Type: 
  Country: None (occurrence: None)
  Receive Date: 20061102
  Receipt Date: 20051011
  Transmission Date: 20070319
  Serious: Yes (Other)
  Sender: FDA-Public Use
  Company Number: FR-ROCHE-420905

PATIENT
  Age: 32 Year
  Sex: Female

DRUGS (4)
  1. ROACCUTANE [Suspect]
     Indication: ACNE
     Dosage: RECEIVED SEVEN TABLETS IN JULY 2005.
     Route: 048
     Dates: end: 20050731
  2. PENTASA [Concomitant]
     Indication: CROHN'S DISEASE
     Route: 048
  3. SUBUTEX [Concomitant]
     Route: 060
  4. UNSPECIFIED DRUG [Concomitant]
     Indication: CONTRACEPTION

REACTIONS (4)
  - NO ADVERSE EFFECT [None]
  - PREGNANCY [None]
  - TREATMENT NONCOMPLIANCE [None]
  - UNINTENDED PREGNANCY [None]
